FAERS Safety Report 9148766 (Version 1)
Quarter: 2013Q1

REPORT INFORMATION
  Report Type: Spontaneous
  Country: US (occurrence: None)
  Receive Date: 20130227
  Receipt Date: 20130227
  Transmission Date: 20140127
  Serious: Yes (Hospitalization)
  Sender: FDA-Public Use
  Company Number: None

PATIENT
  Sex: Female
  Weight: 65.77 kg

DRUGS (1)
  1. COPAXONE [Suspect]
     Indication: MULTIPLE SCLEROSIS
     Dates: start: 20121218, end: 20130224

REACTIONS (11)
  - Dyspnoea [None]
  - Chest discomfort [None]
  - Abdominal pain upper [None]
  - Loss of consciousness [None]
  - Diarrhoea [None]
  - Hyperhidrosis [None]
  - Nausea [None]
  - Chest discomfort [None]
  - Chills [None]
  - Chills [None]
  - Asthenia [None]
